FAERS Safety Report 12562104 (Version 2)
Quarter: 2016Q3

REPORT INFORMATION
  Report Type: Spontaneous
  Country: IL (occurrence: IL)
  Receive Date: 20160715
  Receipt Date: 20160801
  Transmission Date: 20161109
  Serious: Yes (Death, Hospitalization, Other)
  Sender: FDA-Public Use
  Company Number: IL-JNJFOC-20160709964

PATIENT
  Age: 94 Year
  Sex: Male

DRUGS (2)
  1. XARELTO [Suspect]
     Active Substance: RIVAROXABAN
     Indication: CEREBROVASCULAR ACCIDENT PROPHYLAXIS
     Route: 048
     Dates: end: 201607
  2. XARELTO [Suspect]
     Active Substance: RIVAROXABAN
     Indication: ATRIAL FIBRILLATION
     Route: 048
     Dates: end: 201607

REACTIONS (4)
  - Diverticulitis [Unknown]
  - Intestinal haemorrhage [Fatal]
  - Renal impairment [Unknown]
  - Renal failure [Unknown]

NARRATIVE: CASE EVENT DATE: 201607
